FAERS Safety Report 15386483 (Version 2)
Quarter: 2018Q3

REPORT INFORMATION
  Report Type: Spontaneous
  Country: GB (occurrence: GB)
  Receive Date: 20180914
  Receipt Date: 20180920
  Transmission Date: 20181010
  Serious: Yes (Other)
  Sender: FDA-Public Use
  Company Number: GB-SAKK-2018SA254411AA

PATIENT
  Age: 61 Year
  Sex: Female
  Weight: 105 kg

DRUGS (2)
  1. CLEXANE [Suspect]
     Active Substance: ENOXAPARIN SODIUM
     Indication: THROMBOPHLEBITIS SUPERFICIAL
     Dosage: 80 MG
     Route: 051
     Dates: start: 20180807, end: 20180818
  2. PROPANOL [Concomitant]
     Active Substance: PROPRANOLOL HYDROCHLORIDE

REACTIONS (8)
  - Headache [Unknown]
  - Irritability [Unknown]
  - Blood urine present [Unknown]
  - Injection site bruising [Unknown]
  - Fatigue [Recovering/Resolving]
  - Memory impairment [Unknown]
  - Confusional state [Recovering/Resolving]
  - Depressed mood [Unknown]

NARRATIVE: CASE EVENT DATE: 20180809
